FAERS Safety Report 8912447 (Version 2)
Quarter: 2012Q4

REPORT INFORMATION
  Report Type: 
  Country: US (occurrence: US)
  Receive Date: 20121116
  Receipt Date: 20121120
  Transmission Date: 20130627
  Serious: No
  Sender: FDA-Public Use
  Company Number: US-B.I. PHARMACEUTICALS,INC./RIDGEFIELD-2012-BI-00195BP

PATIENT
  Sex: Male

DRUGS (2)
  1. FLOMAX CAPSULES [Suspect]
     Indication: URINARY RETENTION
     Dosage: 0.4 mg
     Route: 048
     Dates: start: 2007
  2. GABAPENTIN [Concomitant]
     Dosage: 300 mg

REACTIONS (2)
  - Bladder discomfort [Recovered/Resolved]
  - Drug ineffective [Recovered/Resolved]
